FAERS Safety Report 24352093 (Version 1)
Quarter: 2024Q3

REPORT INFORMATION
  Report Type: Report from Study
  Country: EG (occurrence: EG)
  Receive Date: 20240923
  Receipt Date: 20240923
  Transmission Date: 20241016
  Serious: No
  Sender: ROCHE
  Company Number: EG-ROCHE-2979030

PATIENT
  Age: 63 Year
  Sex: Female

DRUGS (8)
  1. HERCEPTIN [Suspect]
     Active Substance: TRASTUZUMAB
     Indication: Breast cancer metastatic
     Route: 041
     Dates: start: 20200929
  2. GEMCITABINE [Suspect]
     Active Substance: GEMCITABINE
     Indication: Breast cancer metastatic
     Dosage: D1,D8
     Route: 042
     Dates: start: 20200929, end: 20210717
  3. CISPLATIN [Suspect]
     Active Substance: CISPLATIN
     Indication: Breast cancer metastatic
     Dosage: D1-3 EVERY 3 WEEKS
     Route: 042
     Dates: start: 20200929, end: 20210117
  4. URSODIOL [Concomitant]
     Active Substance: URSODIOL
     Indication: Liver function test increased
     Route: 048
     Dates: start: 20201114
  5. URSODIOL [Concomitant]
     Active Substance: URSODIOL
     Route: 048
     Dates: start: 20201116
  6. LYRICA [Concomitant]
     Active Substance: PREGABALIN
     Indication: Neuropathy peripheral
     Route: 048
     Dates: start: 20210310
  7. BENFOTIAMINE\CYANOCOBALAMIN\PYRIDOXINE HYDROCHLORIDE [Concomitant]
     Active Substance: BENFOTIAMINE\CYANOCOBALAMIN\PYRIDOXINE HYDROCHLORIDE
     Indication: Neuropathy peripheral
     Route: 048
     Dates: start: 20210411
  8. PACKED RBC [Concomitant]
     Indication: Anaemia
     Dosage: 1 UNIT
     Route: 042
     Dates: start: 20210706, end: 20210707

REACTIONS (1)
  - Fatigue [Recovered/Resolved]

NARRATIVE: CASE EVENT DATE: 20201121
